FAERS Safety Report 9646401 (Version 1)
Quarter: 2013Q4

REPORT INFORMATION
  Report Type: Spontaneous
  Country: BR (occurrence: BR)
  Receive Date: 20131025
  Receipt Date: 20131025
  Transmission Date: 20140711
  Serious: Yes (Other)
  Sender: FDA-Public Use
  Company Number: BR-BAXTER-2013BAX041620

PATIENT
  Age: 34 Year
  Sex: Male

DRUGS (4)
  1. GENUXAL [Suspect]
     Indication: PEMPHIGUS
     Route: 042
  2. PREDNISONE [Suspect]
     Indication: PEMPHIGUS
     Route: 048
  3. PREDNISONE [Suspect]
  4. DEXAMETHASONE [Suspect]
     Indication: PEMPHIGUS

REACTIONS (1)
  - Disease recurrence [Unknown]
